FAERS Safety Report 19039510 (Version 2)
Quarter: 2021Q2

REPORT INFORMATION
  Report Type: Report from Study
  Country: RO (occurrence: RO)
  Receive Date: 20210322
  Receipt Date: 20210429
  Transmission Date: 20210717
  Serious: Yes (Hospitalization, Other)
  Sender: FDA-Public Use
  Company Number: RO-GILEAD-2020-0505029

PATIENT
  Age: 78 Year
  Sex: Female

DRUGS (6)
  1. ASPENTER [Concomitant]
     Active Substance: ASPIRIN
  2. ALPHA D3 [Concomitant]
     Active Substance: ALFACALCIDOL
  3. METOPROLOL. [Concomitant]
     Active Substance: METOPROLOL
  4. LEDIPASVIR/SOFOSBUVIR [Suspect]
     Active Substance: LEDIPASVIR\SOFOSBUVIR
     Indication: CHRONIC HEPATITIS C
     Dosage: 1 DOSAGE FORM, QD
     Route: 048
     Dates: start: 20200930, end: 20201222
  5. MYDOCALM [TOLPERISONE HYDROCHLORIDE] [Concomitant]
     Active Substance: TOLPERISONE HYDROCHLORIDE
  6. CONTROLOC [Concomitant]
     Active Substance: PANTOPRAZOLE SODIUM

REACTIONS (10)
  - Constipation [Recovered/Resolved]
  - Malaise [Not Recovered/Not Resolved]
  - Cerebrovascular accident [Recovered/Resolved]
  - Anosmia [Not Recovered/Not Resolved]
  - Headache [Recovered/Resolved]
  - Ageusia [Not Recovered/Not Resolved]
  - Faeces soft [Recovered/Resolved]
  - Amnesia [Not Recovered/Not Resolved]
  - Weight decreased [Not Recovered/Not Resolved]
  - Dizziness [Not Recovered/Not Resolved]

NARRATIVE: CASE EVENT DATE: 20200930
